FAERS Safety Report 19890654 (Version 1)
Quarter: 2021Q3

REPORT INFORMATION
  Report Type: Spontaneous
  Country: US (occurrence: US)
  Receive Date: 20210928
  Receipt Date: 20210928
  Transmission Date: 20211014
  Serious: Yes (Hospitalization)
  Sender: FDA-Public Use
  Company Number: None

PATIENT
  Age: 69 Year
  Sex: Female
  Weight: 69.85 kg

DRUGS (9)
  1. SPRYCEL [Suspect]
     Active Substance: DASATINIB
     Dates: end: 20210920
  2. PREDNISONE. [Suspect]
     Active Substance: PREDNISONE
     Dates: end: 20210831
  3. DEXAMETHASONE. [Suspect]
     Active Substance: DEXAMETHASONE
     Dates: end: 20210920
  4. VINCRISTINE SULFATE. [Suspect]
     Active Substance: VINCRISTINE SULFATE
     Dates: end: 20210917
  5. MESNA. [Suspect]
     Active Substance: MESNA
     Dates: end: 20210910
  6. METHOTREXATE. [Suspect]
     Active Substance: METHOTREXATE
     Dates: end: 20210914
  7. CYTARABINE. [Suspect]
     Active Substance: CYTARABINE
     Dates: end: 20210908
  8. CYCLOPHOSPHAMIDE. [Suspect]
     Active Substance: CYCLOPHOSPHAMIDE
     Dates: end: 20210910
  9. DOXORUBICIN HYDROCHLORIDE. [Suspect]
     Active Substance: DOXORUBICIN HYDROCHLORIDE
     Dates: end: 20210910

REACTIONS (17)
  - Bacteraemia [None]
  - Asterixis [None]
  - Feeding disorder [None]
  - Transaminases increased [None]
  - Beta haemolytic streptococcal infection [None]
  - Diarrhoea [None]
  - Muscle spasms [None]
  - Hypocalcaemia [None]
  - Gram stain positive [None]
  - Pneumonia klebsiella [None]
  - Sepsis [None]
  - Anal incontinence [None]
  - Pancytopenia [None]
  - Acute kidney injury [None]
  - Electrolyte imbalance [None]
  - Hypokalaemia [None]
  - Acute lymphocytic leukaemia [None]

NARRATIVE: CASE EVENT DATE: 20210922
